FAERS Safety Report 4459275-5 (Version None)
Quarter: 2004Q3

REPORT INFORMATION
  Report Type: 
  Country: None (occurrence: None)
  Receive Date: 20040927
  Receipt Date: 20040916
  Transmission Date: 20050211
  Serious: Yes (Other)
  Sender: FDA-Public Use
  Company Number: GBWYE046416SEP04

PATIENT
  Sex: Male

DRUGS (2)
  1. ENBREL [Suspect]
     Indication: DRUG USE FOR UNKNOWN INDICATION
     Dosage: UNKNOWN
  2. METHOTREXATE [Concomitant]
     Dosage: 2.5MG SINGLE DOSE

REACTIONS (6)
  - ERYTHEMA [None]
  - PAIN [None]
  - PSORIASIS [None]
  - PSORIATIC ARTHROPATHY [None]
  - RASH [None]
  - RHEUMATOID VASCULITIS [None]
